FAERS Safety Report 4333622-7 (Version None)
Quarter: 2004Q2

REPORT INFORMATION
  Report Type: 
  Country: None (occurrence: None)
  Receive Date: 20040402
  Receipt Date: 20040324
  Transmission Date: 20050107
  Serious: No
  Sender: FDA-Public Use
  Company Number: 2004UW05750

PATIENT
  Age: 21 Year
  Sex: Female

DRUGS (2)
  1. SEROQUEL [Suspect]
     Indication: SCHIZOPHRENIA
     Dosage: 400 MG QD PO
     Route: 048
  2. SEROQUEL [Suspect]
     Indication: SCHIZOPHRENIA
     Dosage: 100 MG QD PO
     Route: 048
     Dates: start: 20031001

REACTIONS (7)
  - COMMUNICATION DISORDER [None]
  - DRUG INEFFECTIVE [None]
  - DYSKINESIA [None]
  - EUPHORIC MOOD [None]
  - MUTISM [None]
  - MYOCARDIAL INFARCTION [None]
  - SOMNOLENCE [None]
